FAERS Safety Report 9204036 (Version 1)
Quarter: 2013Q1

REPORT INFORMATION
  Report Type: Spontaneous
  Country: US (occurrence: None)
  Receive Date: 20120709
  Receipt Date: 20120709
  Transmission Date: 20140127
  Serious: No
  Sender: FDA-Public Use
  Company Number: 2012HGS-003478

PATIENT
  Age: 57 Year
  Sex: Female

DRUGS (16)
  1. BENLYSTA [Suspect]
     Indication: SYSTEMIC LUPUS ERYTHEMATOSUS
     Dosage: 10 MG/KG, 1 IN 1 M, INTRAVENOUS
     Route: 042
     Dates: start: 20110506
  2. PREDNISONE [Concomitant]
  3. FUROSEMIDE [Concomitant]
  4. ZYRTEC [Concomitant]
  5. MAGNESIUM [Concomitant]
  6. POTASSIUM [Concomitant]
  7. CALCIUM [Concomitant]
  8. MULTIVITAMIN [Concomitant]
  9. FLONASE [Concomitant]
  10. ZESTRIL [Concomitant]
  11. ATENOLOL [Concomitant]
  12. PRAVACHOL [Concomitant]
  13. COUMADIN [Concomitant]
  14. AMBIEN [Concomitant]
  15. VICODIN [Concomitant]
  16. COLCRYS [Concomitant]

REACTIONS (1)
  - Migraine [None]
